FAERS Safety Report 4582463-4 (Version None)
Quarter: 2005Q1

REPORT INFORMATION
  Report Type: 
  Country: None (occurrence: None)
  Receive Date: 20050215
  Receipt Date: 20040916
  Transmission Date: 20050727
  Serious: Yes (Hospitalization)
  Sender: FDA-Public Use
  Company Number: FR-NOVOPROD-239348

PATIENT
  Age: 83 Year
  Sex: Female

DRUGS (17)
  1. NOVONORM [Suspect]
     Indication: ILL-DEFINED DISORDER
     Dosage: 3 TAB, QD
     Route: 048
  2. CORTANCYL [Concomitant]
     Dosage: 1 MG, QD
     Route: 048
  3. PANTOPRAZOLE SODIUM [Concomitant]
     Dosage: 1 UNK, QD
     Route: 048
  4. FOSINOPRIL SODIUM [Concomitant]
     Dosage: 1 UNK, QD
     Route: 048
     Dates: end: 20030723
  5. LASILIX [Concomitant]
     Dosage: 40 MG, QD
     Route: 048
  6. HYDROCORTISONE ^ROUSSEL^ [Concomitant]
     Dosage: 10 MG, BID
     Route: 048
  7. DIGOXIN [Concomitant]
     Dosage: .5 UNK, QD
  8. FLEXICAL [Concomitant]
  9. DIDRONEL ^PROCTER + GAMBLE^ [Concomitant]
  10. IMOVANE [Concomitant]
     Dosage: 1 UNK, QD
  11. TEMESTA [Concomitant]
     Dosage: 1 UNK, QD
  12. PREVISCAN [Concomitant]
     Dosage: 1 UNK, QD
  13. AMOXICILLIN [Concomitant]
     Dosage: 1 G, TID
  14. DIPROSONE [Concomitant]
  15. COLD CREAM [Concomitant]
  16. CHRONADALATE [Concomitant]
  17. OROCAL D(3) [Concomitant]

REACTIONS (2)
  - DRUG INEFFECTIVE [None]
  - PHOTODERMATOSIS [None]
